FAERS Safety Report 7502500-4 (Version None)
Quarter: 2011Q2

REPORT INFORMATION
  Report Type: 
  Country: None (occurrence: None)
  Receive Date: 20110525
  Receipt Date: 20110512
  Transmission Date: 20111010
  Serious: Yes (Other)
  Sender: FDA-Public Use
  Company Number: US-RANBAXY-2011RR-41723

PATIENT
  Sex: Male

DRUGS (5)
  1. AVELOX [Suspect]
     Indication: SINUSITIS
     Dosage: UNK
     Route: 065
     Dates: start: 20020501
  2. METHYLPREDNISOLONE [Suspect]
     Indication: PRODUCT USED FOR UNKNOWN INDICATION
     Route: 048
  3. CIPROFLOXACIN [Suspect]
     Indication: PRODUCT USED FOR UNKNOWN INDICATION
     Route: 048
  4. PREDNISOLONE [Suspect]
     Indication: SINUSITIS
     Route: 065
  5. LEVAQUIN [Suspect]
     Indication: SINUSITIS
     Dosage: UNK
     Route: 065
     Dates: start: 19990501

REACTIONS (3)
  - LIGAMENT RUPTURE [None]
  - LIGAMENT LAXITY [None]
  - JOINT INSTABILITY [None]
